FAERS Safety Report 10420169 (Version 1)
Quarter: 2014Q3

REPORT INFORMATION
  Report Type: Report from Study
  Country: US (occurrence: None)
  Receive Date: 20140804
  Receipt Date: 20140804
  Transmission Date: 20150326
  Serious: Yes (Life-Threatening, Hospitalization)
  Sender: FDA-Public Use
  Company Number: 2013US008720

PATIENT
  Age: 41 Year
  Sex: Female

DRUGS (1)
  1. GLASSIA [Suspect]
     Active Substance: .ALPHA.1-PROTEINASE INHIBITOR HUMAN
     Indication: ALPHA-1 ANTI-TRYPSIN DEFICIENCY
     Dosage: 400 MG, WK, INTRAVENOUS
     Route: 042
     Dates: start: 20120917

REACTIONS (5)
  - Coma [None]
  - Confusional state [None]
  - Renal failure [None]
  - Organ failure [None]
  - Hepatic failure [None]

NARRATIVE: CASE EVENT DATE: 20130412
